FAERS Safety Report 22098267 (Version 1)
Quarter: 2023Q1

REPORT INFORMATION
  Report Type: Spontaneous
  Country: US (occurrence: US)
  Receive Date: 20230315
  Receipt Date: 20230315
  Transmission Date: 20230417
  Serious: Yes (Other)
  Sender: FDA-Public Use
  Company Number: US-ELI_LILLY_AND_COMPANY-US202303003212

PATIENT
  Age: 56 Year
  Weight: 79 kg

DRUGS (2)
  1. HUMULIN R U-500 [Suspect]
     Active Substance: INSULIN HUMAN
     Indication: Product used for unknown indication
     Dosage: 80 U, BID (BREAKFAST AND BEDTIME)
     Route: 065
  2. HUMULIN R U-500 [Suspect]
     Active Substance: INSULIN HUMAN
     Dosage: 20 U, DAILY (AT LUNCH)
     Route: 065

REACTIONS (4)
  - Depression [Unknown]
  - Suicide attempt [Unknown]
  - Blood glucose increased [Unknown]
  - Drug ineffective [Unknown]
